FAERS Safety Report 12543319 (Version 1)
Quarter: 2016Q3

REPORT INFORMATION
  Report Type: Spontaneous
  Country: CN (occurrence: CN)
  Receive Date: 20160711
  Receipt Date: 20160711
  Transmission Date: 20161109
  Serious: Yes (Other)
  Sender: FDA-Public Use
  Company Number: CN-ALVOGEN-2016-ALVOGEN-025608

PATIENT
  Age: 57 Year
  Sex: Female

DRUGS (2)
  1. DOXORUBICIN [Suspect]
     Active Substance: DOXORUBICIN
     Indication: POORLY DIFFERENTIATED THYROID CARCINOMA
     Dates: start: 20131117, end: 20140211
  2. CIS-PLATINUM [Suspect]
     Active Substance: CISPLATIN
     Indication: POORLY DIFFERENTIATED THYROID CARCINOMA
     Dates: start: 20131117, end: 20140211

REACTIONS (2)
  - Palmar-plantar erythrodysaesthesia syndrome [Unknown]
  - Bone marrow failure [Unknown]
